FAERS Safety Report 5383586-2 (Version None)
Quarter: 2007Q3

REPORT INFORMATION
  Report Type: 
  Country: None (occurrence: None)
  Receive Date: 20070710
  Receipt Date: 20070706
  Transmission Date: 20080115
  Serious: Yes (Death, Congenital Anomaly)
  Sender: FDA-Public Use
  Company Number: US-GILEAD-2007-0012626

PATIENT
  Sex: Female
  Weight: 1.226 kg

DRUGS (3)
  1. TRUVADA [Suspect]
     Route: 064
     Dates: end: 20070704
  2. SUSTIVA [Concomitant]
     Route: 064
     Dates: end: 20070201
  3. VIRAMUNE [Concomitant]
     Indication: DRUG EXPOSURE DURING PREGNANCY
     Route: 064

REACTIONS (6)
  - BREECH PRESENTATION [None]
  - DANDY-WALKER SYNDROME [None]
  - FOETAL GROWTH RETARDATION [None]
  - MULTIPLE CONGENITAL ABNORMALITIES [None]
  - STILLBIRTH [None]
  - UMBILICAL CORD ABNORMALITY [None]
